FAERS Safety Report 5389805-0 (Version None)
Quarter: 2007Q3

REPORT INFORMATION
  Report Type: 
  Country: None (occurrence: None)
  Receive Date: 20070716
  Receipt Date: 20070213
  Transmission Date: 20080115
  Serious: Yes (Other)
  Sender: FDA-Public Use
  Company Number: MPS1-10656

PATIENT
  Age: 27 Month
  Sex: Female
  Weight: 15 kg

DRUGS (5)
  1. ALDURAZYME [Suspect]
     Indication: MUCOPOLYSACCHARIDOSIS I
     Dosage: 8.7 MG, IV
     Route: 042
     Dates: start: 20060901
  2. ACETAMINOPHEN [Concomitant]
  3. ENALAPRIL MALEATE [Concomitant]
  4. AMLODIPINE [Concomitant]
  5. CHLORPHENIRAMINE MALEATE [Concomitant]

REACTIONS (7)
  - CYANOSIS [None]
  - IRRITABILITY [None]
  - OXYGEN SATURATION DECREASED [None]
  - PYREXIA [None]
  - TACHYCARDIA [None]
  - TACHYPNOEA [None]
  - TREMOR [None]
